FAERS Safety Report 5604767-6 (Version None)
Quarter: 2008Q1

REPORT INFORMATION
  Report Type: 
  Country: None (occurrence: None)
  Receive Date: 20080128
  Receipt Date: 20070726
  Transmission Date: 20080703
  Serious: No
  Sender: FDA-Public Use
  Company Number: US-BAUSCH-2007BL002579

PATIENT
  Sex: Female

DRUGS (1)
  1. BACITRACIN ZINC AND POLYMYXIN B SULFATE OPHTHALMIC OINTMENT USP [Suspect]
     Indication: EYE INFECTION
     Route: 047
     Dates: start: 20070725

REACTIONS (2)
  - DRUG INEFFECTIVE [None]
  - EYE HAEMORRHAGE [None]
